FAERS Safety Report 5246474-8 (Version None)
Quarter: 2007Q1

REPORT INFORMATION
  Report Type: 
  Country: None (occurrence: None)
  Receive Date: 20070216
  Receipt Date: 20070205
  Transmission Date: 20070707
  Serious: Yes (Hospitalization)
  Sender: FDA-Public Use
  Company Number: 235194

PATIENT
  Age: 12 Year
  Sex: Male
  Weight: 49.3 kg

DRUGS (1)
  1. NUTROPIN [Suspect]
     Indication: GROWTH HORMONE DEFICIENCY
     Dosage: 2.8 MG, 7/WEEK, SUBCUTANEOUS
     Route: 058
     Dates: start: 20050303, end: 20061128

REACTIONS (6)
  - ABDOMINAL PAIN [None]
  - ARTHRALGIA [None]
  - DEHYDRATION [None]
  - GROIN PAIN [None]
  - NAUSEA [None]
  - VOMITING [None]
